FAERS Safety Report 23088324 (Version 1)
Quarter: 2023Q4

REPORT INFORMATION
  Report Type: Spontaneous
  Country: GB (occurrence: None)
  Receive Date: 20231020
  Receipt Date: 20231020
  Transmission Date: 20240110
  Serious: Yes (Other)
  Sender: FDA-Public Use
  Company Number: None

PATIENT
  Age: 59 Year
  Sex: Female
  Weight: 238 kg

DRUGS (3)
  1. ATORVASTATIN [Suspect]
     Active Substance: ATORVASTATIN
     Indication: Blood cholesterol increased
     Dosage: 10 MG ONCE A DAY IN MORNING; ;
     Dates: end: 20230706
  2. PREDNISONE [Suspect]
     Active Substance: PREDNISONE
     Indication: Pulmonary sarcoidosis
     Dates: start: 20220505, end: 20230307
  3. PREDNISONE [Suspect]
     Active Substance: PREDNISONE
     Indication: Myalgia
     Dosage: 20 MG; ;
     Dates: start: 20230104, end: 20230315

REACTIONS (2)
  - Muscle atrophy [Recovered/Resolved with Sequelae]
  - Rash [Recovered/Resolved]

NARRATIVE: CASE EVENT DATE: 20230305
